FAERS Safety Report 22602238 (Version 1)
Quarter: 2023Q2

REPORT INFORMATION
  Report Type: Spontaneous
  Country: US (occurrence: US)
  Receive Date: 20230614
  Receipt Date: 20230614
  Transmission Date: 20230721
  Serious: No
  Sender: FDA-Public Use
  Company Number: US-BRISTOL-MYERS SQUIBB COMPANY-2023-073859

PATIENT
  Age: 77 Year
  Sex: Female
  Weight: 63.049 kg

DRUGS (1)
  1. REVLIMID [Suspect]
     Active Substance: LENALIDOMIDE
     Indication: Myelodysplastic syndrome
     Dosage: DOSE : 5 MG;     FREQ : ^1 PER DAY IN THE MORNINGS^
     Route: 048
     Dates: start: 20230425

REACTIONS (1)
  - Peripheral swelling [Unknown]
